FAERS Safety Report 5825396-5 (Version None)
Quarter: 2008Q3

REPORT INFORMATION
  Report Type: 
  Country: None (occurrence: None)
  Receive Date: 20080729
  Receipt Date: 20080106
  Transmission Date: 20090109
  Serious: No
  Sender: FDA-Public Use
  Company Number: US-BAYER-200810129BCC

PATIENT
  Age: 40 Year
  Sex: Female
  Weight: 57 kg

DRUGS (3)
  1. ALEVE (CAPLET) [Suspect]
     Indication: NASOPHARYNGITIS
     Dosage: UNIT DOSE: 220 MG
     Route: 048
     Dates: start: 20080106
  2. TYLENOL [Suspect]
     Indication: NASOPHARYNGITIS
     Route: 048
     Dates: start: 20080106
  3. PSEUDOEPHEDRINE HCL [Suspect]
     Indication: NASOPHARYNGITIS
     Route: 048
     Dates: start: 20080106

REACTIONS (1)
  - NO ADVERSE EVENT [None]
